FAERS Safety Report 11799828 (Version 1)
Quarter: 2015Q4

REPORT INFORMATION
  Report Type: Spontaneous
  Country: GB (occurrence: GB)
  Receive Date: 20151203
  Receipt Date: 20151203
  Transmission Date: 20160305
  Serious: Yes (Other)
  Sender: FDA-Public Use
  Company Number: GB-JNJFOC-20151201985

PATIENT
  Age: 89 Year
  Sex: Male
  Weight: 86 kg

DRUGS (8)
  1. QUININE SULFATE. [Concomitant]
     Active Substance: QUININE SULFATE
     Route: 065
  2. XARELTO [Suspect]
     Active Substance: RIVAROXABAN
     Indication: ATRIAL FIBRILLATION
     Route: 048
  3. ATORVASTATIN [Concomitant]
     Active Substance: ATORVASTATIN
     Route: 065
  4. COCODAMOL [Concomitant]
     Active Substance: ACETAMINOPHEN\CODEINE PHOSPHATE
     Route: 065
  5. FUROSEMIDE. [Concomitant]
     Active Substance: FUROSEMIDE
     Route: 065
  6. XARELTO [Suspect]
     Active Substance: RIVAROXABAN
     Indication: CEREBROVASCULAR ACCIDENT PROPHYLAXIS
     Route: 048
  7. OLMESARTAN [Concomitant]
     Active Substance: OLMESARTAN
     Route: 065
  8. QUETIAPINE [Concomitant]
     Active Substance: QUETIAPINE
     Route: 065

REACTIONS (6)
  - Haemoglobin decreased [Unknown]
  - Cardiac murmur [Unknown]
  - Melaena [Unknown]
  - Tricuspid valve incompetence [Unknown]
  - Dyspnoea [Unknown]
  - Dilatation ventricular [Unknown]

NARRATIVE: CASE EVENT DATE: 20151116
